FAERS Safety Report 5211470-3 (Version None)
Quarter: 2006Q4

REPORT INFORMATION
  Report Type: 
  Country: None (occurrence: None)
  Receive Date: 20061115
  Receipt Date: 20060721
  Transmission Date: 20070319
  Serious: No
  Sender: FDA-Public Use
  Company Number: 200614755BWH

PATIENT
  Sex: Male

DRUGS (6)
  1. NEXAVAR [Suspect]
     Indication: MALIGNANT MELANOMA STAGE IV
     Dosage: 400 MG, BID, ORAL
     Route: 048
  2. CHEMOTHERAPEUTIC AGENT (NOS)  (UNCODEABLE ^UNCLASSIFIABLE^) [Suspect]
     Indication: MALIGNANT MELANOMA
  3. CHEMOTHERAPEUTIC AGENT (NOS) (UNCODEABLE ^UNCLASSIFIABLE^) [Suspect]
     Indication: MALIGNANT MELANOMA
  4. SYNTHROID [Concomitant]
  5. NEURONTIN [Concomitant]
  6. VICODIN [Concomitant]

REACTIONS (3)
  - BLOOD LACTATE DEHYDROGENASE INCREASED [None]
  - PYREXIA [None]
  - RASH [None]
